FAERS Safety Report 25319056 (Version 3)
Quarter: 2025Q2

REPORT INFORMATION
  Report Type: Report from Study
  Country: CA (occurrence: CA)
  Receive Date: 20250515
  Receipt Date: 20250609
  Transmission Date: 20250716
  Serious: Yes (Hospitalization)
  Sender: JOHNSON AND JOHNSON
  Company Number: CA-JNJFOC-20250510405

PATIENT
  Age: 41 Year
  Sex: Female

DRUGS (1)
  1. REMICADE [Suspect]
     Active Substance: INFLIXIMAB
     Indication: Colitis ulcerative
     Dosage: EXPIRY DATE: MA-2027; THERAPY START DATE ALSO REPORTED AS 02-NOV-2011
     Route: 041
     Dates: start: 20111101

REACTIONS (4)
  - Pneumonia legionella [Unknown]
  - Pericardial effusion [Unknown]
  - Blood potassium decreased [Unknown]
  - Cerebrovascular accident [Unknown]

NARRATIVE: CASE EVENT DATE: 20250417
